APPROVED DRUG PRODUCT: GENTAMICIN SULFATE
Active Ingredient: GENTAMICIN SULFATE
Strength: EQ 10MG BASE/ML
Dosage Form/Route: INJECTABLE;INJECTION
Application: A063149 | Product #001
Applicant: TEVA PARENTERAL MEDICINES INC
Approved: Nov 21, 1991 | RLD: No | RS: No | Type: DISCN